FAERS Safety Report 5765186-5 (Version None)
Quarter: 2008Q2

REPORT INFORMATION
  Report Type: 
  Country: None (occurrence: None)
  Receive Date: 20080611
  Receipt Date: 20080605
  Transmission Date: 20081010
  Serious: Yes (Disabling)
  Sender: FDA-Public Use
  Company Number: JP-BAYER-200811024BYL

PATIENT
  Age: 60 Year
  Sex: Male

DRUGS (1)
  1. NEXAVAR [Suspect]
     Indication: RENAL CELL CARCINOMA
     Dosage: TOTAL DAILY DOSE: 800 MG  UNIT DOSE: 400 MG
     Route: 048
     Dates: start: 20080516, end: 20080525

REACTIONS (1)
  - TOXIC SKIN ERUPTION [None]
